FAERS Safety Report 18918534 (Version 1)
Quarter: 2021Q1

REPORT INFORMATION
  Report Type: Other
  Country: FR (occurrence: FR)
  Receive Date: 20210220
  Receipt Date: 20210220
  Transmission Date: 20210420
  Serious: Yes (Other)
  Sender: FDA-Public Use
  Company Number: FR-ROCHE-2772921

PATIENT
  Age: 29 Year
  Sex: Male

DRUGS (4)
  1. ALIMEMAZINE [Suspect]
     Active Substance: TRIMEPRAZINE
     Indication: SCHIZOPHRENIA
     Dosage: 40 MG, QD
     Route: 065
     Dates: start: 2017
  2. HYDROXYZINE [Suspect]
     Active Substance: HYDROXYZINE HYDROCHLORIDE
     Indication: SCHIZOPHRENIA
     Dosage: 175 MG, QD
     Route: 065
     Dates: start: 2017
  3. DIAZEPAM. [Suspect]
     Active Substance: DIAZEPAM
     Indication: SCHIZOPHRENIA
     Dosage: 10 MG, QD
     Route: 065
     Dates: start: 2017
  4. PALIPERIDONE PALMITATE [Suspect]
     Active Substance: PALIPERIDONE PALMITATE
     Indication: SCHIZOPHRENIA
     Dosage: 100 MG (EVERY 28 DAYS)
     Route: 065
     Dates: start: 2017

REACTIONS (3)
  - Product use in unapproved indication [Unknown]
  - Psychotic symptom [Unknown]
  - Off label use [Unknown]
